FAERS Safety Report 8236125-2 (Version None)
Quarter: 2012Q1

REPORT INFORMATION
  Report Type: 
  Country: None (occurrence: None)
  Receive Date: 20120327
  Receipt Date: 20120319
  Transmission Date: 20120608
  Serious: No
  Sender: FDA-Public Use
  Company Number: US-BIOGENIDEC-2011BI037448

PATIENT
  Age: 48 Year
  Sex: Female

DRUGS (1)
  1. TYSABRI [Suspect]
     Indication: MULTIPLE SCLEROSIS
     Route: 042
     Dates: start: 20090403

REACTIONS (6)
  - MACULAR DEGENERATION [None]
  - NASOPHARYNGITIS [None]
  - DIPLOPIA [None]
  - BLINDNESS UNILATERAL [None]
  - FAECAL INCONTINENCE [None]
  - STRESS [None]
